FAERS Safety Report 6687380-1 (Version None)
Quarter: 2010Q2

REPORT INFORMATION
  Report Type: 
  Country: None (occurrence: None)
  Receive Date: 20100416
  Receipt Date: 20100416
  Transmission Date: 20101027
  Serious: Yes (Other)
  Sender: FDA-Public Use
  Company Number: None

PATIENT
  Age: 26 Year
  Sex: Male
  Weight: 68.4932 kg

DRUGS (1)
  1. LEVAQUIN [Suspect]
     Indication: URETHRITIS
     Dates: start: 20100402, end: 20100409

REACTIONS (5)
  - ARTHRALGIA [None]
  - ASTHENIA [None]
  - FATIGUE [None]
  - MUSCLE TWITCHING [None]
  - NEURALGIA [None]
